FAERS Safety Report 18505665 (Version 1)
Quarter: 2020Q4

REPORT INFORMATION
  Report Type: Report from Study
  Country: UG (occurrence: UG)
  Receive Date: 20201116
  Receipt Date: 20201116
  Transmission Date: 20210114
  Serious: Yes (Death, Other)
  Sender: FDA-Public Use
  Company Number: UG-VIIV HEALTHCARE LIMITED-UG2020GSK224224

PATIENT
  Sex: Male
  Weight: 1.16 kg

DRUGS (24)
  1. BLINDED PLACEBO-VIIV [Suspect]
     Active Substance: INVESTIGATIONAL PRODUCT
     Dosage: UNK
     Route: 064
     Dates: start: 20200505
  2. BLINDED CABOTEGRAVIR [Suspect]
     Active Substance: CABOTEGRAVIR
     Dosage: UNK
     Route: 064
     Dates: start: 20200505
  3. BLINDED PLACEBO-VIIV [Suspect]
     Active Substance: INVESTIGATIONAL PRODUCT
     Dosage: UNK
     Route: 064
     Dates: start: 20191127, end: 20200405
  4. PLACEBO [Suspect]
     Active Substance: UNSPECIFIED INGREDIENT
     Indication: PROPHYLAXIS AGAINST HIV INFECTION
     Dosage: UNK
     Route: 064
     Dates: start: 20191127, end: 20200105
  5. BLINDED CABOTEGRAVIR [Suspect]
     Active Substance: CABOTEGRAVIR
     Dosage: UNK
     Route: 064
     Dates: start: 20191127, end: 20200405
  6. BLINDED PLACEBO-VIIV [Suspect]
     Active Substance: INVESTIGATIONAL PRODUCT
     Dosage: UNK
     Route: 064
     Dates: start: 20191127, end: 20200405
  7. BLINDED EMTRICITABINE + TENOFOVIR [Suspect]
     Active Substance: EMTRICITABINE\TENOFOVIR DISOPROXIL FUMARATE
     Indication: PROPHYLAXIS AGAINST HIV INFECTION
     Dosage: UNK
     Route: 064
     Dates: start: 20191127, end: 20200105
  8. BLINDED CABOTEGRAVIR [Suspect]
     Active Substance: CABOTEGRAVIR
     Dosage: UNK
     Route: 064
     Dates: start: 20191127, end: 20200405
  9. PLACEBO [Suspect]
     Active Substance: UNSPECIFIED INGREDIENT
     Dosage: UNK
     Route: 064
     Dates: start: 20191127, end: 20200405
  10. BLINDED CABOTEGRAVIR [Suspect]
     Active Substance: CABOTEGRAVIR
     Dosage: UNK
     Route: 064
     Dates: start: 20200106, end: 20200205
  11. BLINDED EMTRICITABINE + TENOFOVIR [Suspect]
     Active Substance: EMTRICITABINE\TENOFOVIR DISOPROXIL FUMARATE
     Dosage: UNK
     Route: 064
     Dates: start: 20200106, end: 20200205
  12. BLINDED CABOTEGRAVIR [Suspect]
     Active Substance: CABOTEGRAVIR
     Dosage: UNK
     Route: 064
     Dates: start: 20200505
  13. BLINDED CABOTEGRAVIR [Suspect]
     Active Substance: CABOTEGRAVIR
     Indication: PROPHYLAXIS AGAINST HIV INFECTION
     Dosage: UNK
     Route: 064
     Dates: start: 20191127, end: 20200105
  14. BLINDED PLACEBO-VIIV [Suspect]
     Active Substance: INVESTIGATIONAL PRODUCT
     Indication: PROPHYLAXIS AGAINST HIV INFECTION
     Dosage: UNK
     Route: 064
     Dates: start: 20191127, end: 20200105
  15. BLINDED CABOTEGRAVIR [Suspect]
     Active Substance: CABOTEGRAVIR
     Indication: PROPHYLAXIS AGAINST HIV INFECTION
     Dosage: UNK
     Route: 064
     Dates: start: 20191127, end: 20200105
  16. BLINDED EMTRICITABINE + TENOFOVIR [Suspect]
     Active Substance: EMTRICITABINE\TENOFOVIR DISOPROXIL FUMARATE
     Dosage: UNK
     Route: 064
     Dates: start: 20191127, end: 20200405
  17. BLINDED CABOTEGRAVIR [Suspect]
     Active Substance: CABOTEGRAVIR
     Dosage: UNK
     Route: 064
     Dates: start: 20200106, end: 20200205
  18. PLACEBO [Suspect]
     Active Substance: UNSPECIFIED INGREDIENT
     Dosage: UNK
     Route: 064
     Dates: start: 20200106, end: 20200205
  19. BLINDED PLACEBO-VIIV [Suspect]
     Active Substance: INVESTIGATIONAL PRODUCT
     Dosage: UNK
     Route: 064
     Dates: start: 20200106, end: 20200205
  20. BLINDED EMTRICITABINE + TENOFOVIR [Suspect]
     Active Substance: EMTRICITABINE\TENOFOVIR DISOPROXIL FUMARATE
     Dosage: UNK
     Route: 064
     Dates: start: 20200505
  21. PLACEBO [Suspect]
     Active Substance: UNSPECIFIED INGREDIENT
     Dosage: UNK
     Route: 064
     Dates: start: 20200505
  22. BLINDED PLACEBO-VIIV [Suspect]
     Active Substance: INVESTIGATIONAL PRODUCT
     Dosage: UNK
     Route: 064
     Dates: start: 20200505
  23. BLINDED PLACEBO-VIIV [Suspect]
     Active Substance: INVESTIGATIONAL PRODUCT
     Indication: PROPHYLAXIS AGAINST HIV INFECTION
     Dosage: UNK
     Route: 064
     Dates: start: 20191127, end: 20200105
  24. BLINDED PLACEBO-VIIV [Suspect]
     Active Substance: INVESTIGATIONAL PRODUCT
     Dosage: UNK
     Route: 064
     Dates: start: 20200106, end: 20200205

REACTIONS (2)
  - Foetal exposure during pregnancy [Unknown]
  - Neonatal respiratory distress [Fatal]

NARRATIVE: CASE EVENT DATE: 20201028
